FAERS Safety Report 5806280-X (Version None)
Quarter: 2008Q3

REPORT INFORMATION
  Report Type: 
  Country: None (occurrence: None)
  Receive Date: 20080708
  Receipt Date: 20080623
  Transmission Date: 20090109
  Serious: No
  Sender: FDA-Public Use
  Company Number: C-08-0014-W

PATIENT
  Age: 44 Year
  Sex: Female
  Weight: 77.1115 kg

DRUGS (7)
  1. CEFTRIAXONE [Suspect]
     Indication: URINARY TRACT INFECTION
     Dosage: 1G/DAY INTRAMUSCULAR
     Route: 030
     Dates: start: 20080602, end: 20080604
  2. PREDNISONE TAB [Concomitant]
  3. ATIVAN [Concomitant]
  4. ARTANE [Concomitant]
  5. POLYCITRA-K [Concomitant]
  6. CALCIUM SUPPLEMENTATION [Concomitant]
  7. ASTELIN [Concomitant]

REACTIONS (4)
  - INJECTION SITE HAEMATOMA [None]
  - INJECTION SITE URTICARIA [None]
  - PHARMACEUTICAL PRODUCT COMPLAINT [None]
  - URINARY TRACT INFECTION [None]
